FAERS Safety Report 9644460 (Version 2)
Quarter: 2013Q4

REPORT INFORMATION
  Report Type: Report from Study
  Country: BE (occurrence: BE)
  Receive Date: 20131025
  Receipt Date: 20131206
  Transmission Date: 20140711
  Serious: Yes (Other)
  Sender: FDA-Public Use
  Company Number: BE-AMGEN-BELCT2013074319

PATIENT
  Age: 74 Year
  Sex: Male

DRUGS (4)
  1. ETANERCEPT [Suspect]
     Indication: RHEUMATOID ARTHRITIS
     Dosage: 25 MG, 2 TIMES/WK
     Route: 058
     Dates: start: 20030616, end: 20070917
  2. LEDERTREXATE                       /00113801/ [Concomitant]
     Dosage: UNK UNK,
     Route: 048
     Dates: start: 20000507, end: 20031019
  3. LEDERTREXATE                       /00113801/ [Concomitant]
     Dosage: UNK
     Route: 048
     Dates: start: 20031020, end: 200707
  4. PREDNISOLONE [Concomitant]
     Dosage: UNK
     Route: 048
     Dates: start: 20031020, end: 200707

REACTIONS (1)
  - Urticaria [Recovered/Resolved]
